FAERS Safety Report 4620175-9 (Version None)
Quarter: 2005Q1

REPORT INFORMATION
  Report Type: 
  Country: None (occurrence: None)
  Receive Date: 20050323
  Receipt Date: 20050323
  Transmission Date: 20050727
  Serious: Yes (Other)
  Sender: FDA-Public Use
  Company Number: None

PATIENT
  Age: 24 Year
  Sex: Female
  Weight: 54.4316 kg

DRUGS (1)
  1. ZICAM NASAL SPRAY [Suspect]
     Indication: INFLAMMATION
     Dosage: ONE SPRAY   EACH NOSTRIL   OTHER

REACTIONS (5)
  - AGEUSIA [None]
  - ANOSMIA [None]
  - INFLUENZA [None]
  - NASAL DISCOMFORT [None]
  - PAIN [None]
